FAERS Safety Report 24179286 (Version 3)
Quarter: 2024Q3

REPORT INFORMATION
  Report Type: Report from Study
  Country: US (occurrence: US)
  Receive Date: 20240806
  Receipt Date: 20240910
  Transmission Date: 20241016
  Serious: Yes (Hospitalization, Other)
  Sender: VERTEX
  Company Number: US-VERTEX PHARMACEUTICALS-2024-012665

PATIENT
  Sex: Female
  Weight: 65 kg

DRUGS (8)
  1. SYMDEKO [Suspect]
     Active Substance: IVACAFTOR\TEZACAFTOR
     Indication: Cystic fibrosis
     Dosage: 1 YELLOW TABLET (100MG/150MG) IN MORNING AND 1 BLUE TABLET (150MG) IN EVENING, BID
     Route: 048
     Dates: start: 20240706, end: 20240724
  2. PULMOZYME [Concomitant]
     Active Substance: DORNASE ALFA
     Dosage: 1MG/ML AMPUL
  3. VITAMIN D2 [Concomitant]
     Active Substance: ERGOCALCIFEROL
     Dosage: 2000 INTERNATIONAL UNIT TABLET
  4. FAMOTIDINE [Concomitant]
     Active Substance: FAMOTIDINE
     Dosage: 20 MG TABLET
  5. SALINE [Concomitant]
     Active Substance: SODIUM CHLORIDE
     Dosage: SOLUTION
  6. ALBUTEROL SULFATE [Concomitant]
     Active Substance: ALBUTEROL SULFATE
  7. PERTZYE [Concomitant]
     Active Substance: PANCRELIPASE AMYLASE\PANCRELIPASE LIPASE\PANCRELIPASE PROTEASE
     Dosage: 16K-57.5K CAPSULE DR
  8. CREON [Concomitant]
     Active Substance: PANCRELIPASE AMYLASE\PANCRELIPASE LIPASE\PANCRELIPASE PROTEASE
     Dosage: 24-76-120K CAPSULE DR

REACTIONS (6)
  - Behaviour disorder [Not Recovered/Not Resolved]
  - Sleep terror [Not Recovered/Not Resolved]
  - Screaming [Not Recovered/Not Resolved]
  - Psychotic disorder [Not Recovered/Not Resolved]
  - Delirium [Not Recovered/Not Resolved]
  - Suicide attempt [Not Recovered/Not Resolved]

NARRATIVE: CASE EVENT DATE: 20240101
